FAERS Safety Report 4283334-3 (Version None)
Quarter: 2004Q1

REPORT INFORMATION
  Report Type: 
  Country: None (occurrence: None)
  Receive Date: 20040130
  Receipt Date: 20040123
  Transmission Date: 20041129
  Serious: Yes (Death)
  Sender: FDA-Public Use
  Company Number: CHNY2004EC00449

PATIENT
  Age: 12 Year
  Sex: Male

DRUGS (1)
  1. TAVEGYL (NCH) (CLEMASTINE) HYDROGEN FUMARATE) AMPOULE [Suspect]
     Indication: HYPERSENSITIVITY
     Dosage: 2 MG/2 ML DILUTED IN 10 ML WATER, INTRAVENOUS
     Route: 042
     Dates: start: 20040119, end: 20040119

REACTIONS (1)
  - SUDDEN DEATH [None]
